FAERS Safety Report 26005474 (Version 1)
Quarter: 2025Q4

REPORT INFORMATION
  Report Type: Spontaneous
  Country: EU (occurrence: EU)
  Receive Date: 20251106
  Receipt Date: 20251106
  Transmission Date: 20260118
  Serious: Yes (Hospitalization)
  Sender: REGENERON
  Company Number: None

PATIENT
  Age: 82 Year
  Sex: Female

DRUGS (1)
  1. EYLEA HD [Suspect]
     Active Substance: AFLIBERCEPT
     Indication: Neovascular age-related macular degeneration
     Dosage: 8 MG, SOLUTION FOR INJECTION, 30.1 MG
     Route: 031
     Dates: start: 20250605, end: 20250903

REACTIONS (3)
  - Vitrectomy [Unknown]
  - Iritis [Unknown]
  - Vitritis [Unknown]

NARRATIVE: CASE EVENT DATE: 20250906
